FAERS Safety Report 17425876 (Version 3)
Quarter: 2020Q3

REPORT INFORMATION
  Report Type: Spontaneous
  Country: US (occurrence: US)
  Receive Date: 20200218
  Receipt Date: 20200907
  Transmission Date: 20201102
  Serious: Yes (Other)
  Sender: FDA-Public Use
  Company Number: US-SA-2020SA040081

PATIENT

DRUGS (11)
  1. ALBUTEROL [SALBUTAMOL] [Concomitant]
     Active Substance: ALBUTEROL
  2. FOLIC ACID. [Concomitant]
     Active Substance: FOLIC ACID
  3. LISINOPRIL. [Concomitant]
     Active Substance: LISINOPRIL
  4. DUPIXENT [Suspect]
     Active Substance: DUPILUMAB
     Indication: DERMATITIS ATOPIC
     Dosage: 300 MG, QOW
     Route: 058
     Dates: start: 20181015
  5. PROGESTERONE. [Concomitant]
     Active Substance: PROGESTERONE
  6. ESTRADIOL. [Concomitant]
     Active Substance: ESTRADIOL
  7. ATIVAN [Concomitant]
     Active Substance: LORAZEPAM
  8. MULTIVITAMINS [VITAMINS NOS] [Concomitant]
     Active Substance: VITAMINS
  9. LABETALOL [Concomitant]
     Active Substance: LABETALOL\LABETALOL HYDROCHLORIDE
  10. FLOVENT [Concomitant]
     Active Substance: FLUTICASONE PROPIONATE
  11. PRISTIQ EXTENDED?RELEASE [Concomitant]
     Active Substance: DESVENLAFAXINE SUCCINATE

REACTIONS (4)
  - Cough [Recovered/Resolved]
  - Rash papular [Not Recovered/Not Resolved]
  - Dermatitis atopic [Not Recovered/Not Resolved]
  - Pneumonia [Recovered/Resolved]

NARRATIVE: CASE EVENT DATE: 20200802
